FAERS Safety Report 5481197-1 (Version None)
Quarter: 2007Q4

REPORT INFORMATION
  Report Type: 
  Country: None (occurrence: None)
  Receive Date: 20071010
  Receipt Date: 20071004
  Transmission Date: 20080405
  Serious: Yes (Disabling, Other)
  Sender: FDA-Public Use
  Company Number: PHNU2007DE01678

PATIENT
  Sex: Female

DRUGS (10)
  1. FEMARA [Suspect]
     Indication: BREAST CANCER
     Dosage: 2.5 MG, QD
     Route: 048
     Dates: start: 20060101
  2. FELODIPINE [Concomitant]
     Indication: HYPERTENSION
  3. ENALAPRIL MALEATE [Concomitant]
     Indication: HYPERTENSION
  4. HYDROCHLOROTHIAZIDE [Concomitant]
     Indication: HYPERTENSION
  5. MOXONIDINE [Concomitant]
     Indication: HYPERTENSION
  6. SANDOCAL-D [Concomitant]
  7. VITAMIN D [Concomitant]
     Indication: HYPERHOMOCYSTEINAEMIA
  8. VITAMINES B [Concomitant]
     Indication: HYPERHOMOCYSTEINAEMIA
  9. FOLIC ACID [Concomitant]
     Indication: HYPERHOMOCYSTEINAEMIA
  10. ENOXAPARIN SODIUM [Concomitant]
     Indication: HYPERCOAGULATION

REACTIONS (7)
  - ARTHRALGIA [None]
  - LIMB OPERATION [None]
  - MUSCULOSKELETAL STIFFNESS [None]
  - PAIN IN EXTREMITY [None]
  - TENDONITIS [None]
  - TENOSYNOVITIS STENOSANS [None]
  - TRIGGER FINGER [None]
